FAERS Safety Report 11813341 (Version 1)
Quarter: 2015Q4

REPORT INFORMATION
  Report Type: Spontaneous
  Country: US (occurrence: None)
  Receive Date: 20151207
  Receipt Date: 20151207
  Transmission Date: 20160305
  Serious: Yes (Hospitalization)
  Sender: FDA-Public Use
  Company Number: None

PATIENT
  Age: 72 Year
  Sex: Male
  Weight: 83.7 kg

DRUGS (1)
  1. PRASUGREL [Suspect]
     Active Substance: PRASUGREL
     Indication: CORONARY ARTERIAL STENT INSERTION
     Route: 048
     Dates: start: 20150522, end: 20150531

REACTIONS (4)
  - Vomiting [None]
  - Dehydration [None]
  - Nausea [None]
  - Acute kidney injury [None]

NARRATIVE: CASE EVENT DATE: 20150522
